FAERS Safety Report 9335117 (Version 3)
Quarter: 2013Q3

REPORT INFORMATION
  Report Type: Spontaneous
  Country: US (occurrence: US)
  Receive Date: 20130606
  Receipt Date: 20130723
  Transmission Date: 20140515
  Serious: Yes (Hospitalization)
  Sender: FDA-Public Use
  Company Number: US-GLAXOSMITHKLINE-A1025563A

PATIENT
  Age: 84 Year
  Sex: Male

DRUGS (10)
  1. ADVAIR [Suspect]
     Indication: CHRONIC OBSTRUCTIVE PULMONARY DISEASE
     Dosage: 1PUFF TWICE PER DAY
     Route: 055
     Dates: start: 2010
  2. ATORVASTATIN [Concomitant]
  3. PLAVIX [Concomitant]
  4. PANTOPRAZOLE [Concomitant]
  5. ATENOLOL [Concomitant]
  6. LEVOTHYROXINE [Concomitant]
  7. FOLIC ACID [Concomitant]
  8. FERREX [Concomitant]
  9. FISH OIL [Concomitant]
  10. CENTRUM SILVER [Concomitant]

REACTIONS (5)
  - Hospitalisation [Unknown]
  - Neoplasm [Recovered/Resolved]
  - Anaemia [Recovered/Resolved]
  - Drug ineffective [Recovered/Resolved]
  - Product quality issue [Unknown]
